FAERS Safety Report 8723783 (Version 2)
Quarter: 2012Q4

REPORT INFORMATION
  Report Type: Spontaneous
  Country: JP (occurrence: None)
  Receive Date: 20120726
  Receipt Date: 20121123
  Transmission Date: 20130627
  Serious: Yes (Life-Threatening, Hospitalization)
  Sender: FDA-Public Use
  Company Number: TPA2012A05004

PATIENT
  Age: 86 Year
  Sex: Male

DRUGS (11)
  1. FEBUXOSTAT [Suspect]
     Indication: HYPERURICAEMIA
     Dosage: 10 MG (10 MG, 1 IN 1 D) PER ORAL
     Route: 048
     Dates: start: 20120423
  2. NORVASC OD (AMLODIPINE) [Concomitant]
  3. CARVEDILOL [Concomitant]
  4. ATELEC (CILNIDIPINE) [Concomitant]
  5. LASIX [Concomitant]
  6. TRICHLORMETHIAZIDE [Concomitant]
  7. DIOVAN [Concomitant]
  8. PRAVASTATIN SODIUM [Concomitant]
  9. ASPIRIN [Concomitant]
  10. KREMEZIN (CHARCOAL, ACTIVATED) [Concomitant]
  11. ARGAMATE (CALCIUM POLYSTYRENE SULFONATE) [Concomitant]

REACTIONS (2)
  - LARGE INTESTINE PERFORATION [None]
  - Peritonitis [None]
